FAERS Safety Report 5907565-9 (Version None)
Quarter: 2008Q4

REPORT INFORMATION
  Report Type: 
  Country: None (occurrence: None)
  Receive Date: 20081002
  Receipt Date: 20081002
  Transmission Date: 20090506
  Serious: No
  Sender: FDA-Public Use
  Company Number: None

PATIENT
  Age: 61 Year
  Sex: Male
  Weight: 70.3075 kg

DRUGS (2)
  1. FENTANYL-100 [Suspect]
     Indication: BACK PAIN
     Dosage: 25MCG 72HRS TRANSDERMAL
     Route: 062
     Dates: start: 20080401, end: 20080701
  2. FENTANYL-100 [Suspect]
     Dosage: 12MCG 72 HRS TRANSDERMAL
     Route: 062
     Dates: start: 20080401, end: 20080701

REACTIONS (2)
  - DRUG INEFFECTIVE [None]
  - PRODUCT QUALITY ISSUE [None]
